FAERS Safety Report 4459686-8 (Version None)
Quarter: 2004Q3

REPORT INFORMATION
  Report Type: 
  Country: None (occurrence: None)
  Receive Date: 20040923
  Receipt Date: 20040923
  Transmission Date: 20050211
  Serious: No
  Sender: FDA-Public Use
  Company Number: None

PATIENT
  Age: 71 Year
  Weight: 82 kg

DRUGS (9)
  1. NESIRITIDE  1.5MG/ 250ML [Suspect]
     Indication: CARDIAC FAILURE CONGESTIVE
     Dosage: 0.01MCG/KG/M   INTRAVENOUS
     Route: 042
     Dates: start: 20040126, end: 20040127
  2. COUMADIN [Concomitant]
  3. DIGOXIN [Concomitant]
  4. ALDACTONE [Concomitant]
  5. HALCION [Concomitant]
  6. PAXIL [Concomitant]
  7. ZOCOR [Concomitant]
  8. LASIX [Concomitant]
  9. UNASYN [Concomitant]

REACTIONS (1)
  - HYPOTENSION [None]
